FAERS Safety Report 24609386 (Version 1)
Quarter: 2024Q4

REPORT INFORMATION
  Report Type: Spontaneous
  Country: CH (occurrence: CH)
  Receive Date: 20241112
  Receipt Date: 20241112
  Transmission Date: 20250114
  Serious: Yes (Life-Threatening, Hospitalization, Other)
  Sender: FRESENIUS KABI
  Company Number: CH-FreseniusKabi-FK202416614

PATIENT
  Age: 32 Year
  Sex: Male
  Weight: 79.5 kg

DRUGS (4)
  1. ROCURONIUM BROMIDE [Suspect]
     Active Substance: ROCURONIUM BROMIDE
     Indication: Induction of anaesthesia
     Dosage: ADMINISTERED AT APPROXIMATELY 11:54 AM?50MG/5ML
     Route: 040
     Dates: start: 20241007, end: 20241007
  2. PROPOFOL [Concomitant]
     Active Substance: PROPOFOL
     Indication: Product used for unknown indication
     Dosage: INITIAL 200 MG, FOLLOWED BY 3 MG/MIN
     Route: 040
     Dates: start: 20241007, end: 20241007
  3. REMIFENTANIL [Concomitant]
     Active Substance: REMIFENTANIL
     Indication: Product used for unknown indication
     Dosage: 2 ?G/MIN
     Route: 040
     Dates: start: 20241007, end: 20241007
  4. FENTANYL [Concomitant]
     Active Substance: FENTANYL
     Indication: Product used for unknown indication
     Route: 040
     Dates: start: 20241007, end: 20241007

REACTIONS (2)
  - Anaphylactic shock [Recovered/Resolved]
  - Angioedema [Recovered/Resolved]

NARRATIVE: CASE EVENT DATE: 20241007
